FAERS Safety Report 4975620-6 (Version None)
Quarter: 2006Q2

REPORT INFORMATION
  Report Type: 
  Country: None (occurrence: None)
  Receive Date: 20060411
  Receipt Date: 20060403
  Transmission Date: 20061013
  Serious: Yes (Death, Life-Threatening)
  Sender: FDA-Public Use
  Company Number: 2006-138470-NL

PATIENT
  Age: 62 Year
  Sex: Male

DRUGS (4)
  1. DANAPAROID SODIUM [Suspect]
     Indication: ANTICOAGULANT THERAPY
     Dosage: 750 ANTI_XA BID SUBCUTANEOUS
     Route: 058
     Dates: start: 20060114, end: 20060125
  2. PREDNISONE [Concomitant]
  3. AMPHOTERICIN B [Concomitant]
  4. NITRENDIPINE [Concomitant]

REACTIONS (4)
  - DISEASE RECURRENCE [None]
  - PLATELET COUNT DECREASED [None]
  - PULMONARY EMBOLISM [None]
  - THROMBOSIS [None]
